FAERS Safety Report 9460868 (Version 2)
Quarter: 2013Q3

REPORT INFORMATION
  Report Type: Report from Study
  Country: BR (occurrence: BR)
  Receive Date: 20130816
  Receipt Date: 20130830
  Transmission Date: 20140515
  Serious: Yes (Hospitalization)
  Sender: FDA-Public Use
  Company Number: BR-ROCHE-1261385

PATIENT
  Age: 11 Year
  Sex: Female
  Weight: 26 kg

DRUGS (2)
  1. PULMOZYME [Suspect]
     Indication: CYSTIC FIBROSIS
     Route: 045
     Dates: start: 2003
  2. PANCREATIC ENZYMES [Concomitant]

REACTIONS (4)
  - Cough [Recovered/Resolved]
  - Increased bronchial secretion [Recovered/Resolved]
  - Dyspnoea [Recovered/Resolved]
  - Pyrexia [Recovered/Resolved]
